FAERS Safety Report 13786108 (Version 1)
Quarter: 2017Q3

REPORT INFORMATION
  Report Type: Spontaneous
  Country: US (occurrence: US)
  Receive Date: 20170725
  Receipt Date: 20170725
  Transmission Date: 20171127
  Serious: Yes (Hospitalization)
  Sender: FDA-Public Use
  Company Number: None

PATIENT
  Age: 67 Year
  Sex: Female

DRUGS (12)
  1. XOLAIR [Suspect]
     Active Substance: OMALIZUMAB
     Indication: ASTHMA
     Dosage: 300MG Q4WEEKS SQ
     Route: 058
     Dates: start: 20120710
  2. HYDOXYCOBALEMIN [Concomitant]
  3. KETOCONAZOLE. [Concomitant]
     Active Substance: KETOCONAZOLE
  4. NYSTATIN. [Concomitant]
     Active Substance: NYSTATIN
  5. FLUCONAZOLE. [Concomitant]
     Active Substance: FLUCONAZOLE
  6. MELOXICAM. [Concomitant]
     Active Substance: MELOXICAM
  7. ELIQUIS [Concomitant]
     Active Substance: APIXABAN
  8. POTASSIUM [Concomitant]
     Active Substance: POTASSIUM
  9. LEXAPRO [Concomitant]
     Active Substance: ESCITALOPRAM OXALATE
  10. HYDROCODONE BITARTRATE AND ACETAMINOPHEN [Concomitant]
     Active Substance: ACETAMINOPHEN\HYDROCODONE BITARTRATE
  11. METFORMIN [Concomitant]
     Active Substance: METFORMIN HYDROCHLORIDE
  12. MONTELUKAST [Concomitant]
     Active Substance: MONTELUKAST SODIUM

REACTIONS (1)
  - Ligament operation [None]

NARRATIVE: CASE EVENT DATE: 20170705
